FAERS Safety Report 6416789-6 (Version None)
Quarter: 2009Q4

REPORT INFORMATION
  Report Type: 
  Country: None (occurrence: None)
  Receive Date: 20091027
  Receipt Date: 20091020
  Transmission Date: 20100525
  Serious: Yes (Hospitalization)
  Sender: FDA-Public Use
  Company Number: US-GENENTECH-292422

PATIENT
  Sex: Female
  Weight: 56.5 kg

DRUGS (27)
  1. FLUOROURACIL [Suspect]
     Indication: COLORECTAL CANCER METASTATIC
     Dosage: 150 MG, QD
     Route: 048
     Dates: start: 20081224, end: 20091001
  2. BLINDED BEVACIZUMAB [Suspect]
     Indication: COLORECTAL CANCER METASTATIC
     Dosage: 150 MG, QD
     Route: 048
     Dates: start: 20081224, end: 20091001
  3. BLINDED FOLINIC ACID [Suspect]
     Indication: COLORECTAL CANCER METASTATIC
     Dosage: 150 MG, QD
     Route: 048
     Dates: start: 20081224, end: 20091001
  4. BLINDED GDC-0449 [Suspect]
     Indication: COLORECTAL CANCER METASTATIC
     Dosage: 150 MG, QD
     Route: 048
     Dates: start: 20081224, end: 20091001
  5. IRINOTECAN HCL [Suspect]
     Indication: COLORECTAL CANCER METASTATIC
     Dosage: 150 MG, QD
     Route: 048
     Dates: start: 20081224, end: 20091001
  6. OXALIPLATIN [Suspect]
     Indication: COLORECTAL CANCER METASTATIC
     Dosage: 150 MG, QD
     Route: 048
     Dates: start: 20081224, end: 20091001
  7. BLINDED PLACEBO [Suspect]
     Indication: COLORECTAL CANCER METASTATIC
     Dosage: 150 MG, QD
     Route: 048
     Dates: start: 20081224, end: 20091001
  8. AVASTIN [Suspect]
     Indication: COLORECTAL CANCER METASTATIC
     Dosage: 5 MG/KG, Q2W
     Route: 042
     Dates: start: 20081222, end: 20090922
  9. IRINOTECAN HCL [Suspect]
     Indication: COLORECTAL CANCER METASTATIC
     Dosage: 180 MG/M2, Q2W
     Route: 042
     Dates: start: 20081222, end: 20090922
  10. LEUCOVORIN [Suspect]
     Indication: COLORECTAL CANCER METASTATIC
     Dosage: 400 MG/M2, Q2W
     Route: 042
     Dates: start: 20081222, end: 20090922
  11. FLUOROURACIL [Suspect]
     Indication: COLORECTAL CANCER METASTATIC
     Dosage: 400 MG/M2, UNK
     Route: 040
     Dates: start: 20081222, end: 20090922
  12. FLUOROURACIL [Suspect]
     Dosage: 2400 MG/M2, Q2W
     Route: 042
     Dates: start: 20081222, end: 20090922
  13. CENTRUM SILVER [Concomitant]
     Indication: MEDICAL DIET
     Dosage: 1 UNK, UNK
     Dates: start: 20081120
  14. PROMETHAZINE [Concomitant]
     Indication: NAUSEA
     Dosage: 25 MG, UNK
     Dates: start: 20081224
  15. KYTRIL [Concomitant]
     Indication: NAUSEA
     Dosage: 1 MG, UNK
     Dates: start: 20090217
  16. STRESS TABS [Concomitant]
     Indication: MEDICAL DIET
     Dosage: 1 UNK, UNK
     Dates: start: 20090317
  17. DEXAMETHASONE [Concomitant]
     Indication: PREMEDICATION
     Dosage: 10 MG, UNK
     Dates: start: 20081222
  18. ATROPINE [Concomitant]
     Indication: PREMEDICATION
     Dosage: 1 MG, UNK
     Dates: start: 20081222
  19. LORAZEPAM [Concomitant]
     Indication: PREMEDICATION
     Dosage: 1 MG, UNK
     Dates: start: 20081222
  20. DOLASETRON [Concomitant]
     Indication: PREMEDICATION
     Dosage: 100 MG, UNK
     Dates: start: 20090217
  21. XANAX [Concomitant]
     Indication: NAUSEA
     Dosage: UNK
     Dates: start: 20090713
  22. MEGACE [Concomitant]
     Indication: DECREASED APPETITE
     Dosage: 1 TSP, UNK
     Dates: start: 20090811
  23. ZOFRAN [Concomitant]
     Indication: NAUSEA
     Dosage: 1 UNK, UNK
     Dates: start: 20090811
  24. MUCINEX [Concomitant]
     Indication: BRONCHITIS
     Dosage: 600 MG, UNK
     Dates: start: 20091013, end: 20091017
  25. LEVAQUIN [Concomitant]
     Indication: BRONCHITIS
     Dosage: 750 MG, UNK
     Dates: start: 20091013, end: 20091013
  26. FERROUS SULFATE TAB [Concomitant]
     Indication: ANAEMIA
     Dosage: 325 MG, UNK
     Dates: start: 20091013, end: 20091017
  27. LEVAQUIN [Concomitant]
     Indication: PNEUMONIA
     Dosage: 500 MG, UNK
     Dates: start: 20090916, end: 20090920

REACTIONS (1)
  - VENA CAVA THROMBOSIS [None]
